FAERS Safety Report 8060247-2 (Version None)
Quarter: 2012Q1

REPORT INFORMATION
  Report Type: 
  Country: None (occurrence: None)
  Receive Date: 20120120
  Receipt Date: 20111025
  Transmission Date: 20120608
  Serious: No
  Sender: FDA-Public Use
  Company Number: US-NOVEN-11US003489

PATIENT
  Sex: Female
  Weight: 52.154 kg

DRUGS (3)
  1. FENTANYL [Suspect]
     Indication: BACK DISORDER
  2. FENTANYL [Suspect]
     Indication: SPINAL OSTEOARTHRITIS
  3. FENTANYL [Suspect]
     Indication: ARTHRITIS
     Dosage: 100 UG/HR, Q48HR
     Route: 062
     Dates: start: 20110701

REACTIONS (2)
  - APPLICATION SITE IRRITATION [None]
  - PRODUCT QUALITY ISSUE [None]
